FAERS Safety Report 8912226 (Version 1)
Quarter: 2012Q4

REPORT INFORMATION
  Report Type: 
  Country: ES (occurrence: ES)
  Receive Date: 20121116
  Receipt Date: 20121116
  Transmission Date: 20130627
  Serious: Yes (Other)
  Sender: FDA-Public Use
  Company Number: ES-ACCORD-015217

PATIENT
  Age: 14 Year
  Sex: Male

DRUGS (2)
  1. MONTELUKAST [Suspect]
     Indication: ASTHMA
  2. SALBUTAMOL [Concomitant]
     Indication: ASTHMA

REACTIONS (3)
  - Abnormal behaviour [Recovered/Resolved]
  - Aggression [Recovered/Resolved]
  - Suicidal ideation [Recovered/Resolved]
